FAERS Safety Report 5133509-6 (Version None)
Quarter: 2006Q4

REPORT INFORMATION
  Report Type: 
  Country: None (occurrence: None)
  Receive Date: 20061018
  Receipt Date: 20061005
  Transmission Date: 20070319
  Serious: Yes (Other)
  Sender: FDA-Public Use
  Company Number: 2006121912

PATIENT
  Age: 30 Year
  Sex: Male

DRUGS (1)
  1. GEODON [Suspect]

REACTIONS (2)
  - DYSTONIA [None]
  - JOINT DISLOCATION [None]
